FAERS Safety Report 9866493 (Version 3)
Quarter: 2025Q1

REPORT INFORMATION
  Report Type: Report from Study
  Country: JP (occurrence: JP)
  Receive Date: 20140204
  Receipt Date: 20250121
  Transmission Date: 20250409
  Serious: Yes (Death, Congenital Anomaly)
  Sender: MERCK
  Company Number: JP-009507513-1402JPN000202

PATIENT

DRUGS (5)
  1. FOLLISTIM [Suspect]
     Active Substance: FOLLITROPIN
     Indication: In vitro fertilisation
     Dosage: 225 (UNDER 1000 UNIT), QD
     Route: 065
     Dates: start: 20110729, end: 20110729
  2. FOLLISTIM [Suspect]
     Active Substance: FOLLITROPIN
     Dosage: 150 (UNDER 1000 UNIT), QD
     Route: 065
     Dates: start: 20110730, end: 20110801
  3. GANIREST [Suspect]
     Active Substance: GANIRELIX ACETATE
     Indication: Prevention of premature ovulation
     Dosage: 0.25 MG, QD
     Route: 065
     Dates: start: 20110802, end: 20110805
  4. MENOTROPINS [Concomitant]
     Active Substance: MENOTROPINS
     Indication: In vitro fertilisation
     Dosage: 150 (UNDER 1000 UNIT), QD
     Route: 065
     Dates: start: 20110802, end: 20110802
  5. LUTORAL [Concomitant]
     Active Substance: CHLORMADINONE ACETATE
     Indication: In vitro fertilisation
     Route: 065
     Dates: start: 20110920, end: 20111006

REACTIONS (1)
  - Foetal chromosome abnormality [Fatal]
